FAERS Safety Report 7449814-4 (Version None)
Quarter: 2011Q2

REPORT INFORMATION
  Report Type: 
  Country: None (occurrence: None)
  Receive Date: 20110502
  Receipt Date: 20110425
  Transmission Date: 20111010
  Serious: Yes (Hospitalization)
  Sender: FDA-Public Use
  Company Number: JP-ELI_LILLY_AND_COMPANY-JP201009001544

PATIENT
  Age: 61 Year
  Sex: Male
  Weight: 61.4 kg

DRUGS (26)
  1. PEMETREXED [Suspect]
     Dosage: 500 MG/M2, OTHER
     Route: 042
     Dates: start: 20100507, end: 20100507
  2. CISPLATIN [Concomitant]
     Indication: LUNG ADENOCARCINOMA STAGE IV
     Dosage: 75 MG/M2, UNK
     Route: 042
     Dates: start: 20100315, end: 20100315
  3. PURSENNID /00571902/ [Concomitant]
     Indication: CONSTIPATION PROPHYLAXIS
     Dosage: 12 MG, UNK
     Route: 048
     Dates: start: 20100316
  4. LIVALO [Concomitant]
     Indication: DYSLIPIDAEMIA
     Dosage: 2 MG, UNK
     Route: 048
     Dates: start: 20100601
  5. WYPAX [Concomitant]
     Indication: PROPHYLAXIS
     Dosage: 0.5 MG, UNK
     Route: 048
     Dates: start: 20100716, end: 20100720
  6. PEMETREXED [Suspect]
     Dosage: 500 MG/M2, OTHER
     Route: 042
     Dates: start: 20100405, end: 20100405
  7. PEMETREXED [Suspect]
     Dosage: 400 MG/M2, OTHER
     Route: 042
     Dates: start: 20100916, end: 20100916
  8. PANVITAN [Concomitant]
     Dosage: 1 G (CONTAINS 0.5MG FOLIC ACID), DAILY (1/D)
     Route: 048
     Dates: start: 20100309, end: 20101221
  9. PANTOSIN [Concomitant]
     Indication: CONSTIPATION PROPHYLAXIS
     Dosage: 10 MG, UNK
     Route: 065
     Dates: start: 20100318
  10. MAGLAX [Concomitant]
     Indication: CONSTIPATION PROPHYLAXIS
     Dosage: 330 MG, UNK
     Route: 048
     Dates: start: 20100318
  11. PEMETREXED [Suspect]
     Dosage: 500 MG/M2, OTHER
     Route: 042
     Dates: start: 20100528, end: 20100528
  12. CISPLATIN [Concomitant]
     Dosage: 75 MG/M2, UNK
     Route: 042
     Dates: start: 20100618, end: 20100618
  13. CISPLATIN [Concomitant]
     Dosage: 75 MG/M2, UNK
     Route: 042
     Dates: start: 20100716, end: 20100716
  14. GARENOXACIN MESILATE [Concomitant]
     Indication: RESPIRATORY TRACT INFECTION
     Dosage: 200 MG, UNK
     Route: 048
     Dates: start: 20100428, end: 20100502
  15. PEMETREXED [Suspect]
     Indication: LUNG ADENOCARCINOMA STAGE IV
     Dosage: 500 MG/M2, OTHER
     Route: 042
     Dates: start: 20100315, end: 20100315
  16. PEMETREXED [Suspect]
     Dosage: 500 MG/M2, OTHER
     Route: 042
     Dates: start: 20100716, end: 20100716
  17. PEMETREXED [Suspect]
     Dosage: 400 MG/M2, OTHER
     Route: 042
     Dates: start: 20101014, end: 20101014
  18. PEMETREXED [Suspect]
     Dosage: 400 MG/M2, OTHER
     Route: 042
     Dates: start: 20101111, end: 20101111
  19. CISPLATIN [Concomitant]
     Dosage: 75 MG/M2, UNK
     Route: 042
     Dates: start: 20100507, end: 20100507
  20. PEMETREXED [Suspect]
     Dosage: 500 MG/M2, OTHER
     Route: 042
     Dates: start: 20100618, end: 20100618
  21. PEMETREXED [Suspect]
     Dosage: 400 MG/M2, OTHER
     Route: 042
     Dates: start: 20100812, end: 20100812
  22. PL GRAN. [Concomitant]
     Indication: RESPIRATORY TRACT INFECTION
     Dosage: 1 G, UNK
     Route: 048
     Dates: start: 20100428, end: 20100502
  23. CISPLATIN [Concomitant]
     Dosage: 75 MG/M2, UNK
     Route: 042
     Dates: start: 20100405, end: 20100405
  24. CISPLATIN [Concomitant]
     Dosage: 75 MG/M2, UNK
     Route: 042
     Dates: start: 20100528, end: 20100528
  25. HYDROXOCOBALAMIN ACETATE [Concomitant]
     Dosage: 1 MG, EVERY 9 WEEKS
     Route: 030
     Dates: start: 20100309, end: 20110210
  26. DASEN [Concomitant]
     Indication: RESPIRATORY TRACT INFECTION
     Dosage: 10 MG, UNK
     Route: 048
     Dates: start: 20100428, end: 20100502

REACTIONS (2)
  - NAUSEA [None]
  - DECREASED APPETITE [None]
